FAERS Safety Report 9715678 (Version 1)
Quarter: 2013Q4

REPORT INFORMATION
  Report Type: Spontaneous
  Country: US (occurrence: US)
  Receive Date: 20131127
  Receipt Date: 20131127
  Transmission Date: 20140711
  Serious: Yes (Other)
  Sender: FDA-Public Use
  Company Number: US-ACCORD-020469

PATIENT
  Age: 68 Year
  Sex: Female

DRUGS (3)
  1. PAROXETINE [Suspect]
     Indication: ANXIETY
     Route: 048
  2. GEMCITABINE [Suspect]
     Indication: PANCREATIC CARCINOMA
  3. LORAZEPAM [Concomitant]
     Indication: INSOMNIA
     Dosage: 1-2 TABLETS EVERY 6 HOURS AS NEEDED
     Route: 048

REACTIONS (3)
  - Anxiety [Unknown]
  - Insomnia [Unknown]
  - Tremor [Recovered/Resolved]
